FAERS Safety Report 10310876 (Version 2)
Quarter: 2014Q3

REPORT INFORMATION
  Report Type: Report from Study
  Country: US (occurrence: US)
  Receive Date: 20140717
  Receipt Date: 20140826
  Transmission Date: 20150326
  Serious: Yes (Other)
  Sender: FDA-Public Use
  Company Number: PHEH2014US014166

PATIENT
  Sex: Female

DRUGS (8)
  1. CLONAZEPAM. [Concomitant]
     Active Substance: CLONAZEPAM
     Indication: ANXIETY
     Dosage: UP TO 04 MG QD, DIVIDED
     Route: 048
     Dates: start: 2012
  2. NUVIGIL [Concomitant]
     Active Substance: ARMODAFINIL
     Indication: SLEEP DISORDER
     Dosage: 50-100 MG, DAILY
     Route: 048
     Dates: start: 2010
  3. ALPRAZOLAM. [Concomitant]
     Active Substance: ALPRAZOLAM
     Indication: ANXIETY
     Dosage: 4 MG, QD (DIVIDED)
     Route: 048
     Dates: start: 2010
  4. FANAPT [Suspect]
     Active Substance: ILOPERIDONE
     Indication: BIPOLAR DISORDER
     Dosage: 0.5 TO 1 DF, QD
     Route: 048
     Dates: start: 201404
  5. CYTOMEL [Concomitant]
     Active Substance: LIOTHYRONINE SODIUM
     Indication: THYROID DISORDER
     Dosage: UP TO 50 MCG, QD
     Route: 048
     Dates: start: 2010
  6. SEROQUEL [Suspect]
     Active Substance: QUETIAPINE FUMARATE
     Indication: BIPOLAR DISORDER
     Dosage: 450 TO 500 MG, DAILY
     Route: 048
     Dates: start: 2010
  7. LORAZEPAM. [Concomitant]
     Active Substance: LORAZEPAM
     Indication: ANXIETY
     Dosage: UP TO 3 MG, QD
     Route: 048
     Dates: start: 2011
  8. ROZEREM [Concomitant]
     Active Substance: RAMELTEON
     Indication: SLEEP DISORDER
     Dosage: 14 MG, QHS
     Route: 048
     Dates: start: 2010

REACTIONS (5)
  - Movement disorder [Unknown]
  - Drug ineffective [Unknown]
  - Musculoskeletal disorder [Unknown]
  - Glaucoma [Unknown]
  - Visual impairment [Unknown]
